FAERS Safety Report 5574099-3 (Version None)
Quarter: 2007Q4

REPORT INFORMATION
  Report Type: 
  Country: None (occurrence: None)
  Receive Date: 20071221
  Receipt Date: 20071217
  Transmission Date: 20080405
  Serious: Yes (Death)
  Sender: FDA-Public Use
  Company Number: 2007EN000122

PATIENT
  Sex: Female

DRUGS (1)
  1. ADAGEN [Suspect]
     Indication: COMBINED IMMUNODEFICIENCY
     Dosage: 30 IU/KG; BIW; IM; 44 IU/KG/ BIW; IM
     Route: 030
     Dates: start: 19980210

REACTIONS (1)
  - MEASLES [None]
